FAERS Safety Report 19370120 (Version 1)
Quarter: 2021Q2

REPORT INFORMATION
  Report Type: Spontaneous
  Country: US (occurrence: US)
  Receive Date: 20210603
  Receipt Date: 20210603
  Transmission Date: 20210717
  Serious: No
  Sender: FDA-Public Use
  Company Number: US-BIOGEN-2021BI01014951

PATIENT
  Age: 17 Year
  Sex: Female

DRUGS (6)
  1. SPINRAZA [Suspect]
     Active Substance: NUSINERSEN
     Dosage: FIRST 3 LOADING DOSES EVERY 14 DAYS; 4TH LOADING DOSE ONCE AFTER 30 DAYS
     Route: 037
  2. SPINRAZA [Suspect]
     Active Substance: NUSINERSEN
     Indication: SPINAL MUSCULAR ATROPHY
     Dosage: FIRST 3 LOADING DOSES EVERY 14 DAYS; 4TH LOADING DOSE ONCE AFTER 30 DAYS
     Route: 037
  3. SPINRAZA [Suspect]
     Active Substance: NUSINERSEN
     Dosage: FIRST 3 LOADING DOSES EVERY 14 DAYS; 4TH LOADING DOSE ONCE AFTER 30 DAYS
     Route: 037
  4. SPINRAZA [Suspect]
     Active Substance: NUSINERSEN
     Dosage: ONCE EVERY 4 MONTHS
     Route: 037
  5. SPINRAZA [Suspect]
     Active Substance: NUSINERSEN
     Route: 065
     Dates: start: 20170929
  6. SPINRAZA [Suspect]
     Active Substance: NUSINERSEN
     Dosage: FIRST 3 LOADING DOSES EVERY 14 DAYS; 4TH LOADING DOSE ONCE AFTER 30 DAYS
     Route: 037

REACTIONS (3)
  - Protein total abnormal [Not Recovered/Not Resolved]
  - Urine analysis abnormal [Not Recovered/Not Resolved]
  - Urine protein/creatinine ratio abnormal [Not Recovered/Not Resolved]

NARRATIVE: CASE EVENT DATE: 20210519
